FAERS Safety Report 15713982 (Version 1)
Quarter: 2018Q4

REPORT INFORMATION
  Report Type: Other
  Country: CA (occurrence: CA)
  Receive Date: 20181212
  Receipt Date: 20181212
  Transmission Date: 20190205
  Serious: Yes (Death, Hospitalization)
  Sender: FDA-Public Use
  Company Number: CA-PFIZER INC-2018508254

PATIENT
  Age: 18 Year
  Sex: Female

DRUGS (10)
  1. ALCOHOL. [Suspect]
     Active Substance: ALCOHOL
     Dosage: UNK
     Route: 048
  2. PROPOFOL. [Suspect]
     Active Substance: PROPOFOL
     Dosage: UNK
     Route: 065
  3. DIPHENHYDRAMINE. [Suspect]
     Active Substance: DIPHENHYDRAMINE
     Dosage: UNK
     Route: 065
  4. QUETIAPINE. [Suspect]
     Active Substance: QUETIAPINE
     Dosage: UNK
     Route: 048
  5. ISONIAZID. [Concomitant]
     Active Substance: ISONIAZID
     Dosage: 300 MG, 1X/DAY
     Route: 065
  6. QUETIAPINE. [Suspect]
     Active Substance: QUETIAPINE
     Dosage: 25 MG, 1X/DAY
     Route: 048
  7. ACETYLSALICYLIC ACID [Suspect]
     Active Substance: ASPIRIN
     Dosage: UNK
     Route: 048
  8. CITALOPRAM [Suspect]
     Active Substance: CITALOPRAM HYDROBROMIDE
     Dosage: 20 MG, 1X/DAY
     Route: 065
  9. ATOMOXETINE. [Concomitant]
     Active Substance: ATOMOXETINE HYDROCHLORIDE
     Dosage: 60 MG, 1X/DAY
     Route: 065
  10. ACETAMINOPHEN. [Suspect]
     Active Substance: ACETAMINOPHEN
     Dosage: UNK
     Route: 048

REACTIONS (7)
  - Atrial fibrillation [Fatal]
  - Myocarditis [Fatal]
  - Encephalopathy [Fatal]
  - Liver injury [Fatal]
  - Overdose [Fatal]
  - Completed suicide [Fatal]
  - Cardiac arrest [Fatal]
